FAERS Safety Report 6571729-4 (Version None)
Quarter: 2010Q1

REPORT INFORMATION
  Report Type: 
  Country: None (occurrence: None)
  Receive Date: 20100205
  Receipt Date: 20100126
  Transmission Date: 20100710
  Serious: Yes (Hospitalization)
  Sender: FDA-Public Use
  Company Number: JP-PFIZER INC-2010012078

PATIENT
  Age: 32 Year
  Sex: Female
  Weight: 56 kg

DRUGS (2)
  1. CYTOTEC [Suspect]
     Indication: PROCEDURAL PAIN
     Dosage: 200 MG, SINGLE
     Route: 048
     Dates: start: 20100121, end: 20100121
  2. LOXONIN [Suspect]
     Indication: PROCEDURAL PAIN
     Dosage: 60 MG, SINGLE
     Route: 048
     Dates: start: 20100121, end: 20100121

REACTIONS (2)
  - ASTHMA [None]
  - CONVULSION [None]
